FAERS Safety Report 22624550 (Version 1)
Quarter: 2023Q2

REPORT INFORMATION
  Report Type: Spontaneous
  Country: US (occurrence: US)
  Receive Date: 20230621
  Receipt Date: 20230621
  Transmission Date: 20230722
  Serious: Yes (Hospitalization, Other)
  Sender: FDA-Public Use
  Company Number: US-AMNEAL PHARMACEUTICALS-2022-AMRX-03435

PATIENT
  Age: 18 Year
  Sex: Male
  Weight: 39.5 kg

DRUGS (3)
  1. BACLOFEN [Suspect]
     Active Substance: BACLOFEN
     Indication: Product used for unknown indication
     Dosage: UNK
     Route: 037
  2. BACLOFEN [Concomitant]
     Active Substance: BACLOFEN
     Indication: Product used for unknown indication
     Dosage: 1 TABLETS, EVERY 6HR
     Route: 048
     Dates: start: 20220710
  3. DIAZEPAM [Concomitant]
     Active Substance: DIAZEPAM
     Indication: Product used for unknown indication
     Dosage: 1 TABLETS, EVERY 6HR
     Route: 048

REACTIONS (7)
  - Osteomyelitis [Not Recovered/Not Resolved]
  - Decubitus ulcer [Recovered/Resolved]
  - Drug withdrawal syndrome [Unknown]
  - Pneumonia [Unknown]
  - Muscle spasticity [Recovered/Resolved with Sequelae]
  - Weight decreased [Unknown]
  - Device malfunction [Unknown]

NARRATIVE: CASE EVENT DATE: 20220701
